FAERS Safety Report 5999104-1 (Version None)
Quarter: 2008Q4

REPORT INFORMATION
  Report Type: 
  Country: None (occurrence: None)
  Receive Date: 20081215
  Receipt Date: 20081205
  Transmission Date: 20090506
  Serious: Yes (Hospitalization)
  Sender: FDA-Public Use
  Company Number: CH-JNJFOC-20081201396

PATIENT
  Age: 79 Year
  Sex: Male

DRUGS (9)
  1. RISPERDAL [Suspect]
     Route: 048
  2. RISPERDAL [Suspect]
     Indication: PSYCHOTIC DISORDER
     Route: 048
  3. EFFEXOR [Suspect]
     Indication: DEPRESSION
     Route: 048
  4. REMERON [Suspect]
     Indication: DEPRESSION
     Route: 048
  5. LAXOBERON [Suspect]
     Indication: DRUG USE FOR UNKNOWN INDICATION
     Route: 065
  6. LISITRIL [Suspect]
     Indication: DRUG USE FOR UNKNOWN INDICATION
     Route: 048
  7. ASPIRIN [Concomitant]
     Route: 048
  8. SPIRIVA [Concomitant]
     Route: 055
  9. SERETIDE [Concomitant]
     Route: 055

REACTIONS (9)
  - ANTIDIURETIC HORMONE ABNORMALITY [None]
  - ASTHENIA [None]
  - CYSTITIS [None]
  - HYPONATRAEMIA [None]
  - INFLAMMATION [None]
  - MASTICATION DISORDER [None]
  - PYREXIA [None]
  - RENAL IMPAIRMENT [None]
  - UROSEPSIS [None]
